FAERS Safety Report 7867341-7 (Version None)
Quarter: 2011Q4

REPORT INFORMATION
  Report Type: 
  Country: None (occurrence: None)
  Receive Date: 20111028
  Receipt Date: 20111018
  Transmission Date: 20120403
  Serious: Yes (Other)
  Sender: FDA-Public Use
  Company Number: DE-BRISTOL-MYERS SQUIBB COMPANY-16193112

PATIENT
  Age: 66 Year
  Sex: Male

DRUGS (3)
  1. ASPIRIN [Concomitant]
  2. THYRONAJOD [Concomitant]
  3. GLUCOPHAGE [Suspect]
     Route: 048
     Dates: start: 20110601

REACTIONS (2)
  - METASTASES TO LYMPH NODES [None]
  - DEPRESSION [None]
